FAERS Safety Report 5193523-1 (Version None)
Quarter: 2006Q4

REPORT INFORMATION
  Report Type: 
  Country: None (occurrence: None)
  Receive Date: 20061228
  Receipt Date: 20060626
  Transmission Date: 20070319
  Serious: No
  Sender: FDA-Public Use
  Company Number: US-GLAXOSMITHKLINE-A0610345A

PATIENT
  Age: 52 Year
  Sex: Female

DRUGS (3)
  1. FLONASE [Suspect]
     Dosage: 1SPR TWICE PER DAY
     Route: 045
     Dates: start: 20060623
  2. WATER PILL [Concomitant]
  3. SINUS MEDICATION [Concomitant]

REACTIONS (1)
  - DRUG INEFFECTIVE [None]
